FAERS Safety Report 9342627 (Version 1)
Quarter: 2013Q2

REPORT INFORMATION
  Report Type: Spontaneous
  Country: US (occurrence: US)
  Receive Date: 20130611
  Receipt Date: 20130611
  Transmission Date: 20140414
  Serious: No
  Sender: FDA-Public Use
  Company Number: US-PFIZER INC-2013173030

PATIENT
  Age: 79 Year
  Sex: Male

DRUGS (6)
  1. TOVIAZ [Suspect]
     Indication: HYPERTONIC BLADDER
     Dosage: 8 MG, 1X/DAY
     Route: 048
  2. TOVIAZ [Suspect]
     Dosage: 8 MG, 1X/DAY
     Route: 048
     Dates: start: 2013
  3. OXYBUTYNIN [Suspect]
     Dosage: UNK
  4. FESOTERODINE [Suspect]
     Indication: HYPERTONIC BLADDER
     Dosage: UNK
  5. AVODART [Concomitant]
     Dosage: UNK
  6. ATACAND [Concomitant]
     Indication: HYPERTENSION
     Dosage: 4 MG, UNK

REACTIONS (10)
  - Nervousness [Not Recovered/Not Resolved]
  - Dry mouth [Unknown]
  - Drug effect incomplete [Unknown]
  - Blood pressure abnormal [Unknown]
  - Nervousness [Unknown]
  - Panic reaction [Unknown]
  - Middle insomnia [Unknown]
  - Gastric disorder [Unknown]
  - Insomnia [Unknown]
  - Malaise [Unknown]
